FAERS Safety Report 4786803-2 (Version None)
Quarter: 2005Q4

REPORT INFORMATION
  Report Type: 
  Country: None (occurrence: None)
  Receive Date: 20051003
  Receipt Date: 20051003
  Transmission Date: 20060501
  Serious: Yes (Hospitalization)
  Sender: FDA-Public Use
  Company Number: None

PATIENT
  Age: 63 Year
  Sex: Male
  Weight: 80.7403 kg

DRUGS (7)
  1. INTEGRILIN [Suspect]
     Indication: CORONARY ARTERY DISEASE
     Dosage: 2MCG/KG/MIN CONTINUOUS IV DRIP
     Route: 042
  2. PLAVIX [Suspect]
     Indication: CORONARY ARTERY DISEASE
     Dosage: 300MG ONCE PO
     Route: 048
  3. BENAZEPRIL HCL [Concomitant]
  4. ZANTAC [Concomitant]
  5. ADVICOR [Concomitant]
  6. ASPIRIN [Concomitant]
  7. FLOMAX [Concomitant]

REACTIONS (4)
  - HAEMATOMA [None]
  - PAIN [None]
  - PROCEDURAL COMPLICATION [None]
  - PUNCTURE SITE REACTION [None]
